FAERS Safety Report 15666769 (Version 1)
Quarter: 2018Q4

REPORT INFORMATION
  Report Type: Spontaneous
  Country: IN (occurrence: IN)
  Receive Date: 20181128
  Receipt Date: 20181128
  Transmission Date: 20190205
  Serious: Yes (Death)
  Sender: FDA-Public Use
  Company Number: IN-FRESENIUS KABI-FK201812091

PATIENT
  Age: 73 Year
  Sex: Male

DRUGS (2)
  1. ATROPINE (MANUFACTURER UNKNOWN) [Suspect]
     Active Substance: ATROPINE
     Indication: BRADYCARDIA
     Route: 065
  2. EPINEPHRINE HYDROCHLORIDE. [Suspect]
     Active Substance: EPINEPHRINE HYDROCHLORIDE
     Indication: RESUSCITATION
     Route: 065

REACTIONS (1)
  - Drug ineffective [Fatal]
